FAERS Safety Report 5583877-6 (Version None)
Quarter: 2008Q1

REPORT INFORMATION
  Report Type: 
  Country: None (occurrence: None)
  Receive Date: 20080102
  Receipt Date: 20080102
  Transmission Date: 20080703
  Serious: Yes (Life-Threatening)
  Sender: FDA-Public Use
  Company Number: None

PATIENT
  Age: 54 Year
  Sex: Female
  Weight: 90.7194 kg

DRUGS (1)
  1. TAMIFLU [Suspect]
     Indication: INFLUENZA
     Dosage: 1 CAPSULE 2 TIME A DATE DENTAL
     Route: 004
     Dates: start: 20071113, end: 20071116

REACTIONS (5)
  - ANXIETY [None]
  - BOREDOM [None]
  - DISCOMFORT [None]
  - FEELING ABNORMAL [None]
  - PERSONALITY CHANGE [None]
